FAERS Safety Report 10754640 (Version 1)
Quarter: 2015Q1

REPORT INFORMATION
  Report Type: Spontaneous
  Country: US (occurrence: None)
  Receive Date: 20150130
  Receipt Date: 20150130
  Transmission Date: 20150721
  Serious: Yes (Life-Threatening, Hospitalization, Other)
  Sender: FDA-Public Use
  Company Number: None

PATIENT
  Age: 33 Year
  Sex: Female

DRUGS (2)
  1. NUVIGIL [Suspect]
     Active Substance: ARMODAFINIL
     Indication: SLEEP DISORDER
     Dosage: 1 ONCE DAILY TAKEN BY MOUTH
     Route: 048
     Dates: start: 20140608, end: 20140608
  2. NUVIGIL [Suspect]
     Active Substance: ARMODAFINIL
     Indication: VICTIM OF CRIME
     Dosage: 1 ONCE DAILY TAKEN BY MOUTH
     Route: 048
     Dates: start: 20140608, end: 20140608

REACTIONS (10)
  - Panic attack [None]
  - Impaired driving ability [None]
  - Legal problem [None]
  - Hyperhidrosis [None]
  - Dehydration [None]
  - Urine output decreased [None]
  - Hypoglycaemia [None]
  - Feeling hot [None]
  - Hypertension [None]
  - Alcohol use [None]
